FAERS Safety Report 9465638 (Version 3)
Quarter: 2014Q1

REPORT INFORMATION
  Report Type: Report from Study
  Country: KR (occurrence: KR)
  Receive Date: 20130820
  Receipt Date: 20140217
  Transmission Date: 20141002
  Serious: Yes (Hospitalization, Other)
  Sender: FDA-Public Use
  Company Number: PHHY2013KR087971

PATIENT
  Age: 79 Year
  Sex: Female
  Weight: 77 kg

DRUGS (5)
  1. AMN107 [Suspect]
     Indication: CHRONIC MYELOID LEUKAEMIA
     Dosage: 400 MG, DAILY
     Route: 048
     Dates: start: 20130220
  2. CORDARONE [Concomitant]
     Indication: ARRHYTHMIA
     Dosage: 600 MG, UNK
     Dates: start: 20130509
  3. DIGOXIN [Concomitant]
     Indication: CARDIAC FAILURE
     Dosage: 0.175 MG, UNK
     Dates: start: 20130508
  4. ASTRIX [Concomitant]
     Indication: ANGINA PECTORIS
     Dosage: 100 MG, UNK
  5. CHEMOTHERAPEUTICS NOS [Concomitant]

REACTIONS (6)
  - Cardiac failure congestive [Recovered/Resolved]
  - Oedema peripheral [Unknown]
  - Lymphadenopathy [Unknown]
  - Pleural effusion [Unknown]
  - Dyspnoea [Unknown]
  - Cough [Unknown]
